FAERS Safety Report 9410117 (Version 2)
Quarter: 2013Q3

REPORT INFORMATION
  Report Type: Spontaneous
  Country: DK (occurrence: DK)
  Receive Date: 20130719
  Receipt Date: 20130726
  Transmission Date: 20140515
  Serious: Yes (Hospitalization)
  Sender: FDA-Public Use
  Company Number: DK-ASTRAZENECA-2013SE51959

PATIENT
  Age: 61 Year
  Sex: Male

DRUGS (10)
  1. SEROQUEL PROLONG [Suspect]
     Indication: SCHIZOPHRENIA
     Route: 048
  2. BURANA [Suspect]
     Dosage: MAX 2 TABLETS
     Route: 048
  3. RISPERIDON STADA [Suspect]
     Indication: SCHIZOPHRENIA
     Route: 048
  4. VALDOXAN [Suspect]
     Indication: DEPRESSION
     Route: 048
  5. HALCION [Suspect]
     Indication: INSOMNIA
     Route: 048
  6. ALPROX [Suspect]
     Indication: SEDATION
     Dosage: AS NEEDED, MAX 2 TIMES A DAY
     Route: 048
  7. NITRAZEPAM DAK [Suspect]
     Indication: INSOMNIA
     Route: 048
  8. KODEIN DAK [Suspect]
     Indication: PAIN
     Route: 048
  9. MOVICOL [Concomitant]
     Indication: CONSTIPATION
  10. PINEX [Concomitant]
     Indication: PAIN

REACTIONS (4)
  - Oedema [Recovering/Resolving]
  - Somnolence [Recovered/Resolved]
  - Fatigue [Recovering/Resolving]
  - Asthenia [Recovered/Resolved]
